FAERS Safety Report 4295061-7 (Version None)
Quarter: 2004Q1

REPORT INFORMATION
  Report Type: 
  Country: None (occurrence: None)
  Receive Date: 20040211
  Receipt Date: 20040204
  Transmission Date: 20041129
  Serious: Yes (Hospitalization)
  Sender: FDA-Public Use
  Company Number: 2004197194JP

PATIENT
  Age: 44 Year
  Sex: Female

DRUGS (3)
  1. AZULFIDINE [Suspect]
     Indication: RHEUMATOID ARTHRITIS
     Dosage: 500 MG, QD, ORAL
     Route: 048
     Dates: start: 20031204, end: 20040201
  2. CLINORIL [Concomitant]
  3. SELBEX (TEPRENONE) [Concomitant]

REACTIONS (7)
  - ANOREXIA [None]
  - APHTHOUS STOMATITIS [None]
  - BODY TEMPERATURE INCREASED [None]
  - INFECTION [None]
  - LEUKOPENIA [None]
  - NASOPHARYNGITIS [None]
  - PANCYTOPENIA [None]
